FAERS Safety Report 6583634-8 (Version None)
Quarter: 2010Q1

REPORT INFORMATION
  Report Type: 
  Country: None (occurrence: None)
  Receive Date: 20100128
  Receipt Date: 20100122
  Transmission Date: 20100710
  Serious: Yes (Hospitalization)
  Sender: FDA-Public Use
  Company Number: 2010SP005078

PATIENT
  Age: 35 Year
  Sex: Female
  Weight: 56 kg

DRUGS (7)
  1. FOLLISTIM [Suspect]
     Indication: IN VITRO FERTILISATION
     Dosage: 225 IU;QD;SC ; 150 IU;QD;SC
     Route: 058
     Dates: start: 20070302, end: 20070306
  2. FOLLISTIM [Suspect]
     Indication: IN VITRO FERTILISATION
     Dosage: 225 IU;QD;SC ; 150 IU;QD;SC
     Route: 058
     Dates: start: 20070307, end: 20070310
  3. DUOLUTON /00948701/ [Concomitant]
  4. BUSERECUR [Concomitant]
  5. CHORIONIC GONADOTROPIN [Concomitant]
  6. ESTRADERM [Concomitant]
  7. PROGEHORMON [Concomitant]

REACTIONS (5)
  - CAESAREAN SECTION [None]
  - DRUG EXPOSURE DURING PREGNANCY [None]
  - OVARIAN HYPERSTIMULATION SYNDROME [None]
  - PLACENTA PRAEVIA [None]
  - PREGNANCY [None]
